FAERS Safety Report 8086674 (Version 6)
Quarter: 2014Q2

REPORT INFORMATION
  Report Type: Report from Study
  Country: DE (occurrence: DE)
  Receive Date: 20110811
  Receipt Date: 20140612
  Transmission Date: 20141212
  Serious: Yes (Death, Hospitalization)
  Sender: FDA-Public Use
  Company Number: DE-GLAXOSMITHKLINE-B0732362B

PATIENT
  Age: 57 Year
  Sex: Female
  Weight: 75 kg

DRUGS (8)
  1. TOPOTECAN [Suspect]
     Indication: OVARIAN CANCER RECURRENT
     Route: 042
     Dates: start: 20110627
  2. BLINDED TRIAL MEDICATION [Suspect]
     Indication: OVARIAN CANCER RECURRENT
     Route: 048
     Dates: start: 20110702
  3. FENTANYL [Concomitant]
     Indication: PAIN
     Dosage: 25MG PER DAY
     Route: 042
     Dates: start: 20110801, end: 20110802
  4. TAZOBAC [Concomitant]
     Indication: INFECTION
     Dosage: 4.5MG PER DAY
     Route: 042
     Dates: start: 20110803, end: 20110803
  5. MORPHINE [Concomitant]
     Indication: PAIN
     Dosage: 100MG PER DAY
     Route: 042
     Dates: start: 20110803, end: 20110806
  6. ZIENAM [Concomitant]
     Indication: INFECTION
     Dosage: 100ML PER DAY
     Route: 042
     Dates: start: 20110803, end: 20110805
  7. DISOPRIVAN [Concomitant]
     Indication: SEDATION
     Dosage: 200MG PER DAY
     Route: 042
     Dates: start: 20110803, end: 20110803
  8. UNKNOWN DRUG [Concomitant]
     Dosage: 250MCG PER DAY
     Route: 042
     Dates: start: 20110803, end: 20110803

REACTIONS (4)
  - Subileus [Not Recovered/Not Resolved]
  - Septic shock [Fatal]
  - Vomiting [Not Recovered/Not Resolved]
  - Neutropenia [Not Recovered/Not Resolved]
